FAERS Safety Report 21114699 (Version 1)
Quarter: 2022Q3

REPORT INFORMATION
  Report Type: Spontaneous
  Country: US (occurrence: US)
  Receive Date: 20220721
  Receipt Date: 20220721
  Transmission Date: 20221027
  Serious: Yes (Other)
  Sender: FDA-Public Use
  Company Number: US-MEDEXUS PHARMA, INC.-2022MED00118

PATIENT
  Age: 71 Year
  Sex: Female
  Weight: 102.97 kg

DRUGS (6)
  1. RASUVO [Suspect]
     Active Substance: METHOTREXATE SODIUM
     Indication: Polymyositis
     Dosage: 20 MG INJECTED IN THIGH, 1X/WEEK ON SATURDAYS
     Dates: end: 202109
  2. RASUVO [Suspect]
     Active Substance: METHOTREXATE SODIUM
     Dosage: 20 MG INJECTED IN THIGH, 1X/WEEK ON SATURDAYS
     Dates: start: 2021, end: 20220212
  3. RASUVO [Suspect]
     Active Substance: METHOTREXATE SODIUM
     Dosage: 20 MG INJECTED IN THIGH, 1X/WEEK ON SATURDAYS
     Dates: start: 20220305
  4. NOVOLOG [Concomitant]
     Active Substance: INSULIN ASPART
     Dosage: ^SCALE IS 15 AND UP TO 50,^ 3X/DAY
     Dates: start: 2018
  5. TRESIBA [Concomitant]
     Active Substance: INSULIN DEGLUDEC
     Dosage: 30 UNITED STATES PHARMACOPEIA UNIT, 1X/DAY
     Dates: start: 2018
  6. COVID BOOSTER [Concomitant]
     Dosage: UNK
     Dates: start: 20220224, end: 20220224

REACTIONS (7)
  - Pneumonia [Recovered/Resolved]
  - Asthenia [Recovered/Resolved]
  - Intentional dose omission [Recovered/Resolved]
  - Off label use [Not Recovered/Not Resolved]
  - Tremor [Recovered/Resolved]
  - Fatigue [Recovered/Resolved]
  - Headache [Unknown]

NARRATIVE: CASE EVENT DATE: 20210901
